FAERS Safety Report 25335621 (Version 1)
Quarter: 2025Q2

REPORT INFORMATION
  Report Type: Spontaneous
  Country: CA (occurrence: CA)
  Receive Date: 20250520
  Receipt Date: 20250520
  Transmission Date: 20250717
  Serious: Yes (Death, Hospitalization, Other)
  Sender: SANDOZ
  Company Number: CA-SANDOZ-SDZ2024CA074411

PATIENT
  Age: 80 Year
  Sex: Male

DRUGS (59)
  1. ATORVASTATIN [Suspect]
     Active Substance: ATORVASTATIN
     Dosage: 40 MG, QD
     Route: 048
  2. ATORVASTATIN [Suspect]
     Active Substance: ATORVASTATIN
     Dosage: 40 MG, QD
     Route: 048
  3. ATORVASTATIN [Suspect]
     Active Substance: ATORVASTATIN
     Indication: Product used for unknown indication
     Dosage: 40 MG, QD( EVERY 1 DAYS)
     Route: 048
     Dates: start: 2021, end: 20240220
  4. ALDACTONE [Suspect]
     Active Substance: SPIRONOLACTONE
     Dosage: 12.5 MG, QD
     Route: 048
     Dates: start: 20240101, end: 20240112
  5. ALDACTONE [Suspect]
     Active Substance: SPIRONOLACTONE
     Indication: Cardiac failure
     Dosage: 25 MG, QD
     Route: 048
     Dates: start: 20231229, end: 20231231
  6. BISOPROLOL [Suspect]
     Active Substance: BISOPROLOL
     Dosage: 2.5 MG, QD
     Route: 048
     Dates: start: 20231227, end: 20240105
  7. BISOPROLOL [Suspect]
     Active Substance: BISOPROLOL
     Dosage: 3.75 MG, QD
     Route: 048
  8. BISOPROLOL [Suspect]
     Active Substance: BISOPROLOL
     Indication: Product used for unknown indication
     Dosage: 3.75 MG, QD(EVERY 1 DAYS)
     Route: 048
     Dates: start: 20231004, end: 20231226
  9. BISOPROLOL [Suspect]
     Active Substance: BISOPROLOL
     Route: 065
  10. DULOXETINE [Suspect]
     Active Substance: DULOXETINE
     Indication: Product used for unknown indication
     Route: 065
     Dates: start: 1993, end: 20240220
  11. ENTRESTO [Suspect]
     Active Substance: SACUBITRIL\VALSARTAN
     Indication: Cardiac failure
     Dosage: QD( EVERY 1 DAYS), THERAPY DURATION - 729
     Route: 048
     Dates: start: 2022, end: 20231231
  12. ENTRESTO [Suspect]
     Active Substance: SACUBITRIL\VALSARTAN
     Route: 048
     Dates: start: 20240101, end: 20240104
  13. ENTRESTO [Suspect]
     Active Substance: SACUBITRIL\VALSARTAN
     Route: 048
     Dates: start: 20240112, end: 20240220
  14. FUROSEMIDE [Suspect]
     Active Substance: FUROSEMIDE
     Indication: Product used for unknown indication
     Dosage: 40 MG, QD(EVERY 1 DAYS)
     Route: 048
     Dates: start: 2008, end: 20231227
  15. FERROUS SULFATE [Suspect]
     Active Substance: FERROUS SULFATE
     Indication: Product used for unknown indication
     Dosage: 300 MG, QD
     Route: 048
     Dates: start: 2022, end: 20240220
  16. GLICLAZIDE [Suspect]
     Active Substance: GLICLAZIDE
     Dosage: 30 MG, QD
     Route: 048
  17. GLICLAZIDE [Suspect]
     Active Substance: GLICLAZIDE
     Indication: Product used for unknown indication
     Dosage: 30 MG, QD(EVERY 1 DAYS)
     Route: 048
     Dates: start: 20170701, end: 20240109
  18. LEVETIRACETAM [Suspect]
     Active Substance: LEVETIRACETAM
     Dosage: 500 MG, BID
     Route: 048
  19. LEVETIRACETAM [Suspect]
     Active Substance: LEVETIRACETAM
     Dosage: 500 MG, BID
     Route: 048
  20. LEVETIRACETAM [Suspect]
     Active Substance: LEVETIRACETAM
     Indication: Product used for unknown indication
     Dosage: 500 MG, BID(2 EVERY 1 DAYS)
     Route: 048
     Dates: start: 2013, end: 20240220
  21. METFORMIN [Suspect]
     Active Substance: METFORMIN HYDROCHLORIDE
     Indication: Product used for unknown indication
     Dosage: 500 MG, BID
     Route: 048
     Dates: start: 20240109, end: 20240220
  22. PONSEGROMAB [Suspect]
     Active Substance: PONSEGROMAB
     Indication: Cardiac failure
     Dosage: 300 MG, Q4W , CYCLICC (EACH 4 WEEK)
     Route: 058
     Dates: start: 20231101, end: 20231127
  23. PREGABALIN [Suspect]
     Active Substance: PREGABALIN
     Indication: Product used for unknown indication
     Dosage: 50 MG, BID(2 EVERY 1 DAYS)
     Route: 048
     Dates: start: 1993, end: 20240117
  24. PREGABALIN [Suspect]
     Active Substance: PREGABALIN
     Route: 065
     Dates: start: 20240118, end: 20240220
  25. RISEDRONATE SODIUM [Suspect]
     Active Substance: RISEDRONATE SODIUM
     Dosage: 35 MG, QW
     Route: 048
  26. RISEDRONATE SODIUM [Suspect]
     Active Substance: RISEDRONATE SODIUM
     Indication: Product used for unknown indication
     Dosage: 35 MG, QW(1 EVERY 1 WEEKS)
     Route: 048
     Dates: start: 2021
  27. SPIRONOLACTONE [Suspect]
     Active Substance: SPIRONOLACTONE
     Indication: Product used for unknown indication
     Dosage: 25 MG, QD(EVERY 1 DAYS)
     Route: 048
     Dates: start: 20231129, end: 20231227
  28. SPIRONOLACTONE [Suspect]
     Active Substance: SPIRONOLACTONE
     Indication: Cardiac failure
  29. ASPIRIN [Concomitant]
     Active Substance: ASPIRIN
     Indication: Product used for unknown indication
     Dosage: 80 MG, QD( EVERY 1 DAYS)
     Route: 048
     Dates: start: 2008, end: 20240220
  30. COUMADIN [Concomitant]
     Active Substance: WARFARIN SODIUM
     Indication: Atrial fibrillation
     Dosage: 5 MG, QD( EVERY 1 DAYS)
     Route: 048
     Dates: start: 2008, end: 20240220
  31. DEXILANT [Concomitant]
     Active Substance: DEXLANSOPRAZOLE
     Indication: Product used for unknown indication
     Dosage: 60 MG, QD(EVERY 1 DAYS), DELAYED RELEASE
     Route: 048
     Dates: start: 202305, end: 20240220
  32. DILAUDID [Concomitant]
     Active Substance: HYDROMORPHONE HYDROCHLORIDE
     Indication: Product used for unknown indication
     Route: 065
     Dates: start: 20240108
  33. DOXYCYCLINE [Concomitant]
     Active Substance: DOXYCYCLINE
     Indication: Product used for unknown indication
     Dosage: 100 MG, BID(2 EVERY 1 DAYS)
     Route: 048
     Dates: start: 2021, end: 20240220
  34. DULOXETINE [Concomitant]
     Active Substance: DULOXETINE
     Indication: Product used for unknown indication
     Route: 065
  35. DAPAGLIFLOZIN [Concomitant]
     Active Substance: DAPAGLIFLOZIN
     Indication: Product used for unknown indication
     Dosage: 10 MG, QD(EVERY 1 DAYS)
     Route: 048
     Dates: start: 20170701, end: 20240102
  36. FRAGMIN [Concomitant]
     Active Substance: DALTEPARIN SODIUM
     Indication: Product used for unknown indication
     Dosage: 12500 IU, QD
     Route: 065
     Dates: start: 20231227, end: 20231229
  37. HALDOL [Concomitant]
     Active Substance: HALOPERIDOL
     Route: 065
     Dates: start: 20240108
  38. HALDOL [Concomitant]
     Active Substance: HALOPERIDOL
     Indication: Product used for unknown indication
     Route: 065
     Dates: start: 20240104, end: 20240107
  39. HUMULIN R [Concomitant]
     Active Substance: INSULIN HUMAN
     Indication: Product used for unknown indication
     Route: 065
     Dates: start: 20231227, end: 20240123
  40. HYDROMORPHONE [Concomitant]
     Active Substance: HYDROMORPHONE
     Indication: Product used for unknown indication
     Dosage: 3 MG, QD( EVERY 1 DAYS)
     Route: 065
     Dates: start: 20231213, end: 20240108
  41. Jamp k20 [Concomitant]
     Indication: Product used for unknown indication
     Route: 065
     Dates: start: 2008
  42. LYRICA [Concomitant]
     Active Substance: PREGABALIN
     Indication: Product used for unknown indication
     Dosage: 25+50 MG, 25 MG IN THE MORNING AND 50 MG AT NIGHT
     Route: 065
     Dates: start: 20240118, end: 20240220
  43. MELATONIN [Concomitant]
     Active Substance: MELATONIN
     Indication: Product used for unknown indication
     Dosage: 5 MG, QD
     Route: 048
     Dates: start: 20240110
  44. BISOPROLOL FUMARATE [Concomitant]
     Active Substance: BISOPROLOL FUMARATE
     Indication: Product used for unknown indication
     Route: 065
  45. MYRBETRIQ [Concomitant]
     Active Substance: MIRABEGRON
     Indication: Product used for unknown indication
     Dosage: 25 MG, QD( EVERY 1 DAYS) (EXTENDED- RELEASE)
     Route: 048
     Dates: start: 2020
  46. NICODERM CQ [Concomitant]
     Active Substance: NICOTINE
     Indication: Product used for unknown indication
     Route: 065
     Dates: start: 20240102, end: 20240123
  47. Nicotiana tabacum resin [Concomitant]
     Indication: Product used for unknown indication
     Route: 065
     Dates: start: 20240102, end: 20240123
  48. Novo gesic [Concomitant]
     Indication: Product used for unknown indication
     Route: 048
     Dates: start: 1993, end: 20240107
  49. HYDROMORPHONE HYDROCHLORIDE [Concomitant]
     Active Substance: HYDROMORPHONE HYDROCHLORIDE
     Indication: Product used for unknown indication
     Route: 048
     Dates: start: 1993, end: 20240107
  50. POTASSIUM CHLORIDE [Concomitant]
     Active Substance: POTASSIUM CHLORIDE
     Indication: Hypokalaemia
     Route: 048
  51. POTASSIUM CHLORIDE [Concomitant]
     Active Substance: POTASSIUM CHLORIDE
     Dosage: 40 MEQ, QD
     Route: 065
     Dates: start: 20231229
  52. POTASSIUM CHLORIDE [Concomitant]
     Active Substance: POTASSIUM CHLORIDE
     Dosage: 40 MEQ, QD
     Route: 065
     Dates: start: 20231230
  53. RISPERDAL [Concomitant]
     Active Substance: RISPERIDONE
     Indication: Product used for unknown indication
     Dosage: 0.125 MG, QD
     Route: 065
     Dates: start: 20240105, end: 20240110
  54. CHOLECALCIFEROL [Concomitant]
     Active Substance: CHOLECALCIFEROL
     Indication: Product used for unknown indication
     Dosage: 10000 IU, QW(1 EVERY 1 WEEKS)
     Route: 048
     Dates: start: 2020
  55. FERROUS SULFATE [Concomitant]
     Active Substance: FERROUS SULFATE
     Indication: Product used for unknown indication
     Route: 065
     Dates: start: 2020, end: 20240220
  56. DULOXETINE [Concomitant]
     Active Substance: DULOXETINE
     Indication: Product used for unknown indication
     Dosage: 30 MG, QD( EVERY 1 DAYS)
     Route: 048
  57. TYLENOL [Concomitant]
     Active Substance: ACETAMINOPHEN
     Indication: Product used for unknown indication
     Route: 065
     Dates: start: 20240108, end: 20240220
  58. ZOPICLONE [Concomitant]
     Active Substance: ZOPICLONE
     Dosage: 5 MG, QD
     Route: 048
     Dates: start: 20240108, end: 20240220
  59. ZOPICLONE [Concomitant]
     Active Substance: ZOPICLONE
     Indication: Product used for unknown indication
     Route: 048
     Dates: start: 2021, end: 20240107

REACTIONS (13)
  - Cardiac failure [Fatal]
  - Orthostatic hypotension [Fatal]
  - Disease progression [Fatal]
  - Fall [Fatal]
  - Congestive hepatopathy [Not Recovered/Not Resolved]
  - Respiratory distress [Unknown]
  - Hypovolaemia [Recovered/Resolved]
  - C-reactive protein increased [Unknown]
  - Confusional state [Not Recovered/Not Resolved]
  - Hydrocele [Not Recovered/Not Resolved]
  - Acute kidney injury [Recovered/Resolved]
  - Hypokalaemia [Recovered/Resolved]
  - Skin lesion [Unknown]

NARRATIVE: CASE EVENT DATE: 20240110
